FAERS Safety Report 5347504-5 (Version None)
Quarter: 2007Q2

REPORT INFORMATION
  Report Type: 
  Country: None (occurrence: None)
  Receive Date: 20070606
  Receipt Date: 20070529
  Transmission Date: 20071010
  Serious: Yes (Disabling)
  Sender: FDA-Public Use
  Company Number: PHBS2007IT09114

PATIENT
  Age: 41 Year
  Sex: Female

DRUGS (3)
  1. ZOMETA [Suspect]
     Indication: OSTEOLYSIS
     Dosage: 4 MG/MONTH
     Route: 042
     Dates: start: 20040201, end: 20040831
  2. LH-RH [Concomitant]
  3. ARIMIDEX [Concomitant]

REACTIONS (1)
  - OSTEONECROSIS [None]
